FAERS Safety Report 24621433 (Version 2)
Quarter: 2024Q4

REPORT INFORMATION
  Report Type: Spontaneous
  Country: CN (occurrence: CN)
  Receive Date: 20241114
  Receipt Date: 20241224
  Transmission Date: 20250115
  Serious: Yes (Other)
  Sender: BRISTOL-MYERS SQUIBB COMPANY
  Company Number: CN-MLMSERVICE-20241029-PI237956-00140-1

PATIENT
  Age: 74 Year
  Sex: Male

DRUGS (24)
  1. LENALIDOMIDE [Suspect]
     Active Substance: LENALIDOMIDE
     Indication: Angioimmunoblastic T-cell lymphoma
     Dosage: 25 MG FROM DAY 1 TO DAY 21
     Dates: start: 20210819, end: 20210909
  2. THALIDOMIDE [Suspect]
     Active Substance: THALIDOMIDE
     Indication: Angioimmunoblastic T-cell lymphoma
     Dosage: FOR 4 CYCLES
     Dates: start: 20210909
  3. THALIDOMIDE [Suspect]
     Active Substance: THALIDOMIDE
     Dosage: 75 MG ONCE PER NIGHT FOR 2 CYCLES
     Route: 048
     Dates: start: 20211129
  4. THALIDOMIDE [Suspect]
     Active Substance: THALIDOMIDE
     Dosage: 75 MG ONCE PER NIGHT FOR 4 CYCLES
     Route: 048
     Dates: start: 20220113
  5. THALIDOMIDE [Suspect]
     Active Substance: THALIDOMIDE
     Dosage: FOR 3 CYCLES
     Dates: start: 2022
  6. CYCLOPHOSPHAMIDE [Suspect]
     Active Substance: CYCLOPHOSPHAMIDE
     Indication: Angioimmunoblastic T-cell lymphoma
     Dates: start: 20211001
  7. VINDESINE [Suspect]
     Active Substance: VINDESINE
     Indication: Angioimmunoblastic T-cell lymphoma
     Dates: start: 20211001
  8. EPIRUBICIN [Suspect]
     Active Substance: EPIRUBICIN
     Indication: Angioimmunoblastic T-cell lymphoma
     Dates: start: 20211001
  9. ETOPOSIDE [Suspect]
     Active Substance: ETOPOSIDE
     Indication: Angioimmunoblastic T-cell lymphoma
     Dosage: CHOPE
     Dates: start: 20210801
  10. ETOPOSIDE [Suspect]
     Active Substance: ETOPOSIDE
     Dosage: 0.1 G FROM DAY 1 TO DAY 3 FOR 4 CYCLES
     Dates: start: 20210819
  11. TUCIDINOSTAT [Suspect]
     Active Substance: TUCIDINOSTAT
     Indication: Angioimmunoblastic T-cell lymphoma
     Dosage: 30 MG TWICE A WEEK FOR 4 CYCLES, 30 MG TWICE A WEEK FOR 2 CYCLES  AND AGAIN GIVEN FOR 4 CYCLES.
     Dates: start: 20210819
  12. TUCIDINOSTAT [Suspect]
     Active Substance: TUCIDINOSTAT
     Dosage: 30 MG TWICE WEEKLY FOR 4 CYCLES
     Dates: start: 20220113
  13. TUCIDINOSTAT [Suspect]
     Active Substance: TUCIDINOSTAT
     Dosage: FOR 3 CYCLES
     Dates: start: 2022
  14. DEXAMETHASONE [Suspect]
     Active Substance: DEXAMETHASONE
     Indication: Angioimmunoblastic T-cell lymphoma
     Dosage: 20 MG FROM DAY 1 TO DAY 5 FOR 4 CYCLES
     Dates: start: 20210819
  15. DEXAMETHASONE [Suspect]
     Active Substance: DEXAMETHASONE
     Dosage: 10 MG FROM DAY 1 TO DAY 5 FOR 4 CYCLES
     Dates: start: 20220113
  16. CYCLOSPORINE [Suspect]
     Active Substance: CYCLOSPORINE
     Indication: Angioimmunoblastic T-cell lymphoma
     Dosage: FOR 4 CYCLES
     Dates: start: 20210909
  17. CYCLOSPORINE [Suspect]
     Active Substance: CYCLOSPORINE
     Dosage: 100 MG TWICE DAILY FOR 2 CYCLES
     Dates: start: 20211129
  18. CYCLOSPORINE [Suspect]
     Active Substance: CYCLOSPORINE
     Dosage: 100 MG TWICE DAILY FOR 4 CYCLES
     Dates: start: 20220113
  19. CYCLOSPORINE [Suspect]
     Active Substance: CYCLOSPORINE
     Dosage: FOR 3 CYCLES
     Dates: start: 2022
  20. BRENTUXIMAB VEDOTIN [Suspect]
     Active Substance: BRENTUXIMAB VEDOTIN
     Indication: Angioimmunoblastic T-cell lymphoma
     Dosage: 100 MG ON DAY 1 FOR 2 CYCLES
     Dates: start: 20211129
  21. BRENTUXIMAB VEDOTIN [Suspect]
     Active Substance: BRENTUXIMAB VEDOTIN
     Dosage: 100 MG ON DAY 1 FOR 4 CYCLES
     Dates: start: 20220113
  22. PREDNISOLONE ACETATE [Suspect]
     Active Substance: PREDNISOLONE ACETATE
     Indication: Angioimmunoblastic T-cell lymphoma
     Dosage: 100 MG FROM DAY 1 TO DAY 5 FOR 2 CYCLES
     Dates: start: 20211129
  23. BENDAMUSTINE [Suspect]
     Active Substance: BENDAMUSTINE
     Indication: Angioimmunoblastic T-cell lymphoma
     Dosage: 125 MG FROM DAY 2 TO DAY 3 FOR 4 CYCLES
     Dates: start: 20220113
  24. EBASTINE [Concomitant]
     Active Substance: EBASTINE
     Indication: Urticaria
     Dates: start: 202105

REACTIONS (2)
  - Myelosuppression [Unknown]
  - Off label use [Unknown]

NARRATIVE: CASE EVENT DATE: 20220714
